FAERS Safety Report 23952490 (Version 2)
Quarter: 2024Q3

REPORT INFORMATION
  Report Type: Spontaneous
  Country: BR (occurrence: BR)
  Receive Date: 20240607
  Receipt Date: 20240705
  Transmission Date: 20241017
  Serious: Yes (Death, Hospitalization, Other)
  Sender: BEIGENE
  Company Number: BR-BEIGENE-BGN-2024-008745

PATIENT

DRUGS (3)
  1. BRUKINSA [Suspect]
     Active Substance: ZANUBRUTINIB
     Indication: Mantle cell lymphoma
     Dosage: 320 MILLIGRAM A DAY
     Route: 048
     Dates: start: 20230224, end: 20240521
  2. PURAN [Concomitant]
     Active Substance: LEVOTHYROXINE SODIUM
     Indication: Hypothyroidism
     Dosage: 100
  3. SIMVASTATIN [Concomitant]
     Active Substance: SIMVASTATIN
     Indication: Dyslipidaemia

REACTIONS (3)
  - Septic endocarditis [Fatal]
  - Dengue fever [Unknown]
  - Septic cerebral embolism [Unknown]

NARRATIVE: CASE EVENT DATE: 20240401
